FAERS Safety Report 7070108-3 (Version None)
Quarter: 2010Q4

REPORT INFORMATION
  Report Type: 
  Country: None (occurrence: None)
  Receive Date: 20101028
  Receipt Date: 20100819
  Transmission Date: 20110411
  Serious: No
  Sender: FDA-Public Use
  Company Number: US-WYE-H17188110

PATIENT
  Sex: Female
  Weight: 19.98 kg

DRUGS (5)
  1. ADVIL [Suspect]
     Indication: PAIN
     Dosage: 2 TO 3 LIQUI-GELS EVERY EVENING
     Route: 048
  2. MULTI-VITAMINS [Concomitant]
  3. FOSAMAX [Concomitant]
  4. ATENOLOL [Concomitant]
  5. PRAVASTATIN [Concomitant]

REACTIONS (2)
  - FEELING ABNORMAL [None]
  - INCORRECT DOSE ADMINISTERED [None]
